FAERS Safety Report 18440060 (Version 1)
Quarter: 2020Q4

REPORT INFORMATION
  Report Type: Spontaneous
  Country: US (occurrence: US)
  Receive Date: 20201028
  Receipt Date: 20201028
  Transmission Date: 20210114
  Serious: No
  Sender: FDA-Public Use
  Company Number: None

PATIENT
  Age: 77 Year
  Sex: Female
  Weight: 72 kg

DRUGS (13)
  1. PREDNISONE. [Concomitant]
     Active Substance: PREDNISONE
  2. AMIODARONE [Concomitant]
     Active Substance: AMIODARONE
  3. FUROSEMIDE. [Concomitant]
     Active Substance: FUROSEMIDE
  4. METOPROLOL. [Concomitant]
     Active Substance: METOPROLOL
  5. IBRANCE [Suspect]
     Active Substance: PALBOCICLIB
     Indication: BREAST CANCER
     Dosage: ?          OTHER FREQUENCY:DAILY FOR 21/28 D;?
     Route: 048
     Dates: start: 20200702
  6. ATORVASTATIN [Concomitant]
     Active Substance: ATORVASTATIN
  7. IBUPROFEN. [Concomitant]
     Active Substance: IBUPROFEN
  8. DICLOFENAC [Concomitant]
     Active Substance: DICLOFENAC
  9. FOLIC ACID. [Concomitant]
     Active Substance: FOLIC ACID
  10. WARFARIN [Concomitant]
     Active Substance: WARFARIN
  11. ELIQUIS [Concomitant]
     Active Substance: APIXABAN
  12. EXEMESTANE. [Concomitant]
     Active Substance: EXEMESTANE
  13. OXYCODONE [Concomitant]
     Active Substance: OXYCODONE

REACTIONS (1)
  - Dyspnoea [None]

NARRATIVE: CASE EVENT DATE: 20201028
